FAERS Safety Report 8243156-5 (Version None)
Quarter: 2012Q1

REPORT INFORMATION
  Report Type: 
  Country: None (occurrence: None)
  Receive Date: 20120314
  Receipt Date: 20100818
  Transmission Date: 20120608
  Serious: Yes (Life-Threatening)
  Sender: FDA-Public Use
  Company Number: PHHY2010US54870

PATIENT
  Age: 31 Year
  Sex: Male

DRUGS (3)
  1. ZOLOFT [Concomitant]
  2. FANAPT [Suspect]
     Indication: SCHIZOPHRENIA, PARANOID TYPE
     Dosage: 6 MG, BID, ORAL
     Route: 048
     Dates: start: 20100617, end: 20100803
  3. WELLBUTRIN [Concomitant]

REACTIONS (3)
  - HYPERSENSITIVITY [None]
  - SWOLLEN TONGUE [None]
  - RASH GENERALISED [None]
